FAERS Safety Report 20375120 (Version 1)
Quarter: 2022Q1

REPORT INFORMATION
  Report Type: Spontaneous
  Country: US (occurrence: None)
  Receive Date: 20220124
  Receipt Date: 20220124
  Transmission Date: 20220423
  Serious: Yes (Other)
  Sender: FDA-Public Use
  Company Number: None

PATIENT
  Age: 71 Year
  Sex: Male
  Weight: 85.5 kg

DRUGS (1)
  1. TETRABENAZINE [Suspect]
     Active Substance: TETRABENAZINE
     Indication: Tardive dyskinesia
     Dosage: FREQUENCY : TWICE A DAY;?
     Route: 048
     Dates: start: 20210101, end: 20220101

REACTIONS (4)
  - Gait disturbance [None]
  - Fatigue [None]
  - Bedridden [None]
  - Depression [None]

NARRATIVE: CASE EVENT DATE: 20220101
